FAERS Safety Report 12484096 (Version 1)
Quarter: 2016Q2

REPORT INFORMATION
  Report Type: Spontaneous
  Country: US (occurrence: None)
  Receive Date: 20160620
  Receipt Date: 20160620
  Transmission Date: 20160815
  Serious: Yes (Life-Threatening, Hospitalization, Other)
  Sender: FDA-Public Use
  Company Number: None

PATIENT
  Age: 58 Year
  Sex: Male
  Weight: 73.05 kg

DRUGS (7)
  1. OMEPRAZOLE. [Concomitant]
     Active Substance: OMEPRAZOLE
  2. IBUPROFEN. [Concomitant]
     Active Substance: IBUPROFEN
  3. PREDNIOSONE [Concomitant]
  4. METAXALONE. [Concomitant]
     Active Substance: METAXALONE
  5. LEVOTHYROXINE. [Concomitant]
     Active Substance: LEVOTHYROXINE
  6. PANTOPRAZOLE [Concomitant]
     Active Substance: PANTOPRAZOLE SODIUM
  7. PROTONIX [Suspect]
     Active Substance: PANTOPRAZOLE SODIUM

REACTIONS (12)
  - Rash erythematous [None]
  - Drug-induced liver injury [None]
  - Myalgia [None]
  - Pyrexia [None]
  - Hepatic enzyme increased [None]
  - Aspartate aminotransferase increased [None]
  - Drug reaction with eosinophilia and systemic symptoms [None]
  - Alanine aminotransferase increased [None]
  - Nasopharyngitis [None]
  - Headache [None]
  - Liver transplant [None]
  - Bilirubin conjugated increased [None]

NARRATIVE: CASE EVENT DATE: 20160306
